FAERS Safety Report 5042107-4 (Version None)
Quarter: 2006Q2

REPORT INFORMATION
  Report Type: 
  Country: None (occurrence: None)
  Receive Date: 20060627
  Receipt Date: 20060621
  Transmission Date: 20061013
  Serious: No
  Sender: FDA-Public Use
  Company Number: 0606-389

PATIENT
  Age: 61 Year
  Sex: Female

DRUGS (6)
  1. DUONEB [Suspect]
     Indication: BRONCHITIS CHRONIC
     Dosage: 1 VIAL 2X DAILY-NEBULIZER
  2. DUONEB [Suspect]
     Indication: CHRONIC OBSTRUCTIVE PULMONARY DISEASE
     Dosage: 1 VIAL 2X DAILY-NEBULIZER
  3. DUONEB [Suspect]
     Indication: EMPHYSEMA
     Dosage: 1 VIAL 2X DAILY-NEBULIZER
  4. QUESTRAN [Concomitant]
  5. X [Concomitant]
  6. X [Concomitant]

REACTIONS (1)
  - DRUG INEFFECTIVE [None]
